FAERS Safety Report 9592535 (Version 1)
Quarter: 2013Q3

REPORT INFORMATION
  Report Type: Spontaneous
  Country: US (occurrence: None)
  Receive Date: 20130927
  Receipt Date: 20130927
  Transmission Date: 20140515
  Serious: Yes (Other)
  Sender: FDA-Public Use
  Company Number: CABO-13002905

PATIENT
  Age: 60 Year
  Sex: Female

DRUGS (1)
  1. COMETRIQ [Suspect]
     Indication: RENAL CANCER
     Route: 048
     Dates: start: 20130529

REACTIONS (1)
  - Oral pain [None]
